FAERS Safety Report 8299580 (Version 2)
Quarter: 2014Q1

REPORT INFORMATION
  Report Type: Spontaneous
  Country: US (occurrence: US)
  Receive Date: 20111219
  Receipt Date: 20140120
  Transmission Date: 20141002
  Serious: Yes (Hospitalization, Other)
  Sender: FDA-Public Use
  Company Number: US-BAYER-2011-121516

PATIENT
  Age: 33 Year
  Sex: Female

DRUGS (3)
  1. YAZ [Suspect]
     Dosage: UNK
     Dates: start: 200709, end: 200909
  2. IBUPROFEN [Concomitant]
     Indication: PAIN MANAGEMENT
     Dosage: UNK UNK, PRN
  3. MULTIVITAMINS [Concomitant]

REACTIONS (8)
  - Gallbladder disorder [None]
  - Post cholecystectomy syndrome [None]
  - Cholecystitis chronic [None]
  - Anxiety [None]
  - Injury [None]
  - Pain [None]
  - Anhedonia [None]
  - Psychological trauma [None]
